FAERS Safety Report 6981424-5 (Version None)
Quarter: 2010Q3

REPORT INFORMATION
  Report Type: 
  Country: None (occurrence: None)
  Receive Date: 20100914
  Receipt Date: 20091105
  Transmission Date: 20110219
  Serious: No
  Sender: FDA-Public Use
  Company Number: US-BRISTOL-MYERS SQUIBB COMPANY-14853691

PATIENT

DRUGS (1)
  1. MEGACE [Suspect]
     Indication: INCREASED APPETITE

REACTIONS (1)
  - DRUG INEFFECTIVE [None]
